FAERS Safety Report 4539305-2 (Version None)
Quarter: 2004Q4

REPORT INFORMATION
  Report Type: 
  Country: None (occurrence: None)
  Receive Date: 20041222
  Receipt Date: 20041130
  Transmission Date: 20050328
  Serious: Yes (Hospitalization)
  Sender: FDA-Public Use
  Company Number: 2004106446

PATIENT
  Age: 47 Year
  Sex: Female

DRUGS (4)
  1. SOLU-MEDROL [Suspect]
     Indication: MENIERE'S DISEASE
     Dosage: INTRAVENOUS
     Route: 042
     Dates: start: 20040805, end: 20040825
  2. ALPROSTADIL [Concomitant]
  3. ISOSORBIDE (ISOSORBIDE) [Concomitant]
  4. THIAMINE DISULFIDE (THIAMINE DISULFIDE) [Concomitant]

REACTIONS (3)
  - HEPATITIS FULMINANT [None]
  - LYMPHOCYTE STIMULATION TEST POSITIVE [None]
  - URINE ANALYSIS ABNORMAL [None]
